FAERS Safety Report 18588248 (Version 1)
Quarter: 2020Q4

REPORT INFORMATION
  Report Type: Report from Study
  Country: BR (occurrence: BR)
  Receive Date: 20201207
  Receipt Date: 20201207
  Transmission Date: 20210114
  Serious: Yes (Other)
  Sender: FDA-Public Use
  Company Number: BR-TAKEDA-BR202028678

PATIENT
  Age: 15 Year
  Sex: Female
  Weight: 64 kg

DRUGS (6)
  1. ICATIBANT [Suspect]
     Active Substance: ICATIBANT ACETATE
     Indication: HEREDITARY ANGIOEDEMA
     Dosage: 30MG/10MG/ML
     Route: 065
  2. OXANDROLONE. [Concomitant]
     Active Substance: OXANDROLONE
     Indication: PRODUCT USED FOR UNKNOWN INDICATION
  3. ICATIBANT [Suspect]
     Active Substance: ICATIBANT ACETATE
     Indication: HEREDITARY ANGIOEDEMA
     Dosage: 30MG/10MG/ML
     Route: 065
  4. TRANEXAMIC ACID. [Concomitant]
     Active Substance: TRANEXAMIC ACID
     Indication: PRODUCT USED FOR UNKNOWN INDICATION
  5. ICATIBANT [Suspect]
     Active Substance: ICATIBANT ACETATE
     Dosage: 30 MG/10 ML/ML
     Route: 065
  6. ICATIBANT [Suspect]
     Active Substance: ICATIBANT ACETATE
     Dosage: 30 MG/10 ML/ML
     Route: 065

REACTIONS (6)
  - Incorrect dose administered [Recovering/Resolving]
  - Injection site pain [Recovered/Resolved]
  - Hereditary angioedema [Recovered/Resolved]
  - Injection site erythema [Recovered/Resolved]
  - Product use issue [Unknown]
  - Product use in unapproved indication [Unknown]

NARRATIVE: CASE EVENT DATE: 20200826
